FAERS Safety Report 4371631-2 (Version None)
Quarter: 2004Q2

REPORT INFORMATION
  Report Type: 
  Country: None (occurrence: None)
  Receive Date: 20040601
  Receipt Date: 20040519
  Transmission Date: 20050107
  Serious: Yes (Hospitalization)
  Sender: FDA-Public Use
  Company Number: 204977

PATIENT
  Age: 51 Year
  Sex: Female

DRUGS (9)
  1. HERCEPTIN [Suspect]
     Indication: BREAST CANCER
     Dosage: 432 MG, SINGLE, INTRAVENOUS; 216 MG, 1/WEEK, INTRAVENOUS
     Route: 042
     Dates: start: 20040216, end: 20040216
  2. HERCEPTIN [Suspect]
     Indication: BREAST CANCER
     Dosage: 432 MG, SINGLE, INTRAVENOUS; 216 MG, 1/WEEK, INTRAVENOUS
     Route: 042
     Dates: start: 20040301
  3. DOCETAXEL(DOCETAXEL) [Suspect]
     Indication: BREAST CANCER
     Dosage: 210 MG, Q3W, INTRAVENOUS
     Route: 042
     Dates: start: 20040217, end: 20040419
  4. DOXORUBICIN HYDROCHLORIDE [Suspect]
     Indication: BREAST CANCER
     Dosage: 127 MG, Q3W, INTRAVENOUS
     Route: 042
     Dates: start: 20031216, end: 20040127
  5. CYCLOPHOSPHAMIDE [Suspect]
     Indication: BREAST CANCER
     Dosage: 1266 MG, Q3W, INTRAVENOUS
     Route: 042
     Dates: start: 20031216, end: 20040127
  6. ATIVAN [Concomitant]
  7. BENADRYL [Concomitant]
  8. DECADRON [Concomitant]
  9. ZOFRAN [Concomitant]

REACTIONS (5)
  - BONE PAIN [None]
  - FATIGUE [None]
  - NEUTROPENIC INFECTION [None]
  - PYREXIA [None]
  - URINARY TRACT INFECTION [None]
